FAERS Safety Report 7290324-5 (Version None)
Quarter: 2011Q1

REPORT INFORMATION
  Report Type: 
  Country: None (occurrence: None)
  Receive Date: 20110209
  Receipt Date: 20110209
  Transmission Date: 20110831
  Serious: Yes (Other)
  Sender: FDA-Public Use
  Company Number: None

PATIENT
  Age: 63 Year
  Sex: Female
  Weight: 79.3795 kg

DRUGS (1)
  1. PROPOXYPHENE HCL AND ACETAMINOPHEN [Suspect]
     Indication: ARTHRALGIA
     Dosage: 1 PILL 1-2X MOUTH
     Route: 048
     Dates: start: 20100920, end: 20101005

REACTIONS (3)
  - NAUSEA [None]
  - DIARRHOEA [None]
  - CHEST DISCOMFORT [None]
